FAERS Safety Report 9226647 (Version 1)
Quarter: 2013Q2

REPORT INFORMATION
  Report Type: Spontaneous
  Country: US (occurrence: US)
  Receive Date: 20130412
  Receipt Date: 20130412
  Transmission Date: 20140414
  Serious: No
  Sender: FDA-Public Use
  Company Number: US-PFIZER INC-2013112152

PATIENT
  Age: 58 Year
  Sex: Female
  Weight: 61.22 kg

DRUGS (3)
  1. PRISTIQ [Suspect]
     Indication: DEPRESSION
     Dosage: 100 MG, 1X/DAY
     Route: 048
     Dates: start: 2006, end: 201303
  2. CYMBALTA [Concomitant]
     Indication: DEPRESSION
     Dosage: UNK
  3. LITHIUM [Concomitant]
     Dosage: UNK
     Dates: end: 2013

REACTIONS (5)
  - Thyroid function test abnormal [Unknown]
  - Blood thyroid stimulating hormone increased [Unknown]
  - Weight fluctuation [Unknown]
  - Adjustment disorder [Unknown]
  - Depression [Unknown]
